FAERS Safety Report 7442967-3 (Version None)
Quarter: 2011Q2

REPORT INFORMATION
  Report Type: 
  Country: None (occurrence: None)
  Receive Date: 20110428
  Receipt Date: 20110418
  Transmission Date: 20111010
  Serious: Yes (Hospitalization, Disabling)
  Sender: FDA-Public Use
  Company Number: DE-MERCK-1103DEU00010

PATIENT
  Age: 53 Year
  Sex: Female
  Weight: 80 kg

DRUGS (9)
  1. SITAGLIPTIN PHOSPHATE [Suspect]
     Indication: TYPE 2 DIABETES MELLITUS
     Route: 048
     Dates: start: 20091201
  2. INSULIN [Concomitant]
     Route: 058
  3. METFORMIN [Concomitant]
     Indication: TYPE 2 DIABETES MELLITUS
     Route: 048
  4. JANUVIA [Suspect]
     Indication: TYPE 2 DIABETES MELLITUS
     Route: 048
     Dates: start: 20091201
  5. AMLODIPINE [Concomitant]
     Indication: HYPERTENSION
     Route: 048
  6. JANUMET [Suspect]
     Indication: TYPE 2 DIABETES MELLITUS
     Route: 048
     Dates: start: 20091201
  7. SITAGLIPTIN AND METFORMIN HYDROCHLORIDE [Suspect]
     Indication: TYPE 2 DIABETES MELLITUS
     Route: 048
     Dates: start: 20091201
  8. PANTOPRAZOLE [Concomitant]
     Indication: REFLUX OESOPHAGITIS
     Route: 048
  9. CANDESARTAN [Concomitant]
     Route: 048

REACTIONS (5)
  - POLYNEUROPATHY [None]
  - MICROANGIOPATHY [None]
  - GASTRIC CANCER [None]
  - SCIATICA [None]
  - MALIGNANT PERITONEAL NEOPLASM [None]
